FAERS Safety Report 14516480 (Version 1)
Quarter: 2018Q1

REPORT INFORMATION
  Report Type: Spontaneous
  Country: NL (occurrence: NL)
  Receive Date: 20180212
  Receipt Date: 20180212
  Transmission Date: 20180509
  Serious: Yes (Death, Other)
  Sender: FDA-Public Use
  Company Number: NL-CIPLA LTD.-2018NL03128

PATIENT

DRUGS (12)
  1. ANASTROZOLE. [Suspect]
     Active Substance: ANASTROZOLE
     Dosage: UNK
     Route: 065
  2. LEUPRORELINE [Suspect]
     Active Substance: LEUPROLIDE
     Indication: ENDOMETRIAL SARCOMA METASTATIC
     Dosage: UNK
     Route: 065
  3. DOXORUBICIN HYDROCHLORIDE. [Suspect]
     Active Substance: DOXORUBICIN HYDROCHLORIDE
     Indication: ENDOMETRIAL STROMAL SARCOMA
     Dosage: UNK, 6 COURSES
     Route: 065
  4. IFOSFAMIDE. [Suspect]
     Active Substance: IFOSFAMIDE
     Indication: ENDOMETRIAL SARCOMA METASTATIC
     Dosage: 5 G/M2, IN A 24-H CONTINUOUS INFUSION EVERY 3 WEEKS
  5. PAZOPANIB [Suspect]
     Active Substance: PAZOPANIB
     Dosage: 200 MG, EVERY THIRD DAY
     Route: 048
  6. PAZOPANIB [Suspect]
     Active Substance: PAZOPANIB
     Dosage: 200 MG, EVERY OTHER DAY
     Route: 048
  7. MEGESTROL ACETATE. [Suspect]
     Active Substance: MEGESTROL ACETATE
     Indication: ENDOMETRIAL STROMAL SARCOMA
     Dosage: 160 MG, UNK
     Route: 065
  8. PAZOPANIB [Suspect]
     Active Substance: PAZOPANIB
     Dosage: 200 MG, ONCE EVERY OTHER DAY
     Route: 048
  9. ANASTROZOLE. [Suspect]
     Active Substance: ANASTROZOLE
     Indication: ENDOMETRIAL SARCOMA METASTATIC
     Dosage: 1 MG, UNK
     Route: 065
  10. PAZOPANIB [Suspect]
     Active Substance: PAZOPANIB
     Indication: ENDOMETRIAL SARCOMA METASTATIC
     Dosage: 800 MG, QD
     Route: 048
  11. PAZOPANIB [Suspect]
     Active Substance: PAZOPANIB
     Dosage: 200 MG, QD
     Route: 048
  12. PAZOPANIB [Suspect]
     Active Substance: PAZOPANIB
     Dosage: 400 MG, DAILY
     Route: 048

REACTIONS (6)
  - Malignant neoplasm progression [Unknown]
  - Gamma-glutamyltransferase increased [Unknown]
  - Metastases to lung [Unknown]
  - Death [Fatal]
  - Alanine aminotransferase increased [Unknown]
  - Pleural effusion [Unknown]
